FAERS Safety Report 14403332 (Version 1)
Quarter: 2018Q1

REPORT INFORMATION
  Report Type: Report from Study
  Country: CA (occurrence: CA)
  Receive Date: 20180117
  Receipt Date: 20180117
  Transmission Date: 20180509
  Serious: Yes (Hospitalization)
  Sender: FDA-Public Use
  Company Number: PHHY2017CA145183

PATIENT
  Sex: Female

DRUGS (2)
  1. EXJADE [Suspect]
     Active Substance: DEFERASIROX
     Indication: IRON OVERLOAD
     Dosage: 1000 MG, QD
     Route: 048
     Dates: start: 201401
  2. EXJADE [Suspect]
     Active Substance: DEFERASIROX
     Dosage: 1000 MG, QD
     Route: 048

REACTIONS (5)
  - Drug intolerance [Unknown]
  - Serum ferritin decreased [Unknown]
  - Weight decreased [Unknown]
  - Serum ferritin increased [Unknown]
  - Gastric disorder [Recovering/Resolving]
